FAERS Safety Report 5501279-5 (Version None)
Quarter: 2007Q4

REPORT INFORMATION
  Report Type: 
  Country: None (occurrence: None)
  Receive Date: 20071029
  Receipt Date: 20071023
  Transmission Date: 20080405
  Serious: Yes (Other)
  Sender: FDA-Public Use
  Company Number: US-MERCK-0710USA04789

PATIENT
  Age: 48 Year
  Sex: Female

DRUGS (1)
  1. TIMOPTIC [Suspect]
     Indication: GLAUCOMA
     Route: 047

REACTIONS (2)
  - FLAT ANTERIOR CHAMBER OF EYE [None]
  - INTRAOCULAR PRESSURE INCREASED [None]
